FAERS Safety Report 7107194-8 (Version None)
Quarter: 2010Q4

REPORT INFORMATION
  Report Type: 
  Country: None (occurrence: None)
  Receive Date: 20101116
  Receipt Date: 20101015
  Transmission Date: 20110411
  Serious: No
  Sender: FDA-Public Use
  Company Number: US-ABBOTT-10P-163-0679256-00

PATIENT
  Sex: Male
  Weight: 95.794 kg

DRUGS (2)
  1. SIMCOR [Suspect]
     Indication: HIGH DENSITY LIPOPROTEIN DECREASED
     Dosage: 1000/20MG EVERY NIGHT
     Dates: start: 20100601
  2. SIMCOR [Suspect]
     Dosage: 1000/20MG EVERY NIGHT
     Dates: end: 20091101

REACTIONS (11)
  - BASEDOW'S DISEASE [None]
  - CARDIAC FLUTTER [None]
  - DIZZINESS [None]
  - DYSPEPSIA [None]
  - ERECTILE DYSFUNCTION [None]
  - FEELING JITTERY [None]
  - FLUSHING [None]
  - GASTROOESOPHAGEAL REFLUX DISEASE [None]
  - PALPITATIONS [None]
  - THYROID DISORDER [None]
  - TREMOR [None]
